FAERS Safety Report 4735019-4 (Version None)
Quarter: 2005Q3

REPORT INFORMATION
  Report Type: 
  Country: None (occurrence: None)
  Receive Date: 20050804
  Receipt Date: 20050722
  Transmission Date: 20060218
  Serious: Yes (Hospitalization, Other)
  Sender: FDA-Public Use
  Company Number: USA-2004-0014919

PATIENT
  Age: 48 Year
  Sex: Male

DRUGS (23)
  1. OXYCONTIN [Suspect]
     Indication: PAIN
     Dosage: SEE IMAGE
  2. CAPTOPRIL [Concomitant]
  3. HYDROCHLOROTHIAZIDE [Concomitant]
  4. EFFEXOR [Concomitant]
  5. LIPITOR [Concomitant]
  6. GLUCOTROL [Concomitant]
  7. AMITRIPTYLINE HCL [Concomitant]
  8. HYDROCODONE [Concomitant]
  9. NEURONTIN [Concomitant]
  10. VIAGRA [Concomitant]
  11. VERAPAMIL [Concomitant]
  12. FLUCONAZOLE [Concomitant]
  13. CLONAZEPAM [Concomitant]
  14. CAPOZIDE (HYDROCHLOROTHIAZIDE) [Concomitant]
  15. GEMFIBROZIL [Concomitant]
  16. BENADRYL [Concomitant]
  17. KETAMINE (KETAMINE) [Concomitant]
  18. CELEXA [Concomitant]
  19. GLUCOPHAGE [Concomitant]
  20. BENADRYL LOTION N (DIPHENHYDRAMINE HYDROCHLORIDE, ZINC OXIDE) [Concomitant]
  21. ZOLOFT [Concomitant]
  22. CEPHALEXIN [Concomitant]
  23. VERAPAMIL [Concomitant]

REACTIONS (41)
  - ALLODYNIA [None]
  - ANHEDONIA [None]
  - ANXIETY [None]
  - ARTHRALGIA [None]
  - ASTHENIA [None]
  - BACK PAIN [None]
  - CHORIORETINAL ATROPHY [None]
  - DECREASED INTEREST [None]
  - DELUSIONAL DISORDER, UNSPECIFIED TYPE [None]
  - DEPRESSION [None]
  - DIARRHOEA [None]
  - DRUG DEPENDENCE [None]
  - DRUG WITHDRAWAL SYNDROME [None]
  - ERECTILE DYSFUNCTION [None]
  - ERYTHEMA [None]
  - EYE INJURY [None]
  - GLAUCOMA [None]
  - HALLUCINATION, TACTILE [None]
  - HYPERCHOLESTEROLAEMIA [None]
  - HYPERHIDROSIS [None]
  - HYPERSENSITIVITY [None]
  - INADEQUATE ANALGESIA [None]
  - INAPPROPRIATE SCHEDULE OF DRUG ADMINISTRATION [None]
  - INSOMNIA [None]
  - IRREGULAR SLEEP PHASE [None]
  - MUSCLE SPASMS [None]
  - MYALGIA [None]
  - NAUSEA [None]
  - OBSESSIVE-COMPULSIVE DISORDER [None]
  - OEDEMA PERIPHERAL [None]
  - PAIN [None]
  - PAIN IN EXTREMITY [None]
  - PARANOIA [None]
  - PRESBYOPIA [None]
  - RHINITIS [None]
  - SOMNOLENCE [None]
  - SUICIDAL IDEATION [None]
  - SWELLING [None]
  - TREATMENT NONCOMPLIANCE [None]
  - TREMOR [None]
  - VOMITING [None]
